FAERS Safety Report 6771382-0 (Version None)
Quarter: 2010Q2

REPORT INFORMATION
  Report Type: 
  Country: None (occurrence: None)
  Receive Date: 20100616
  Receipt Date: 20100608
  Transmission Date: 20101027
  Serious: Yes (Life-Threatening, Hospitalization, Other)
  Sender: FDA-Public Use
  Company Number: FR-ABBOTT-10P-056-0643038-00

PATIENT
  Sex: Female
  Weight: 52 kg

DRUGS (11)
  1. HUMIRA [Suspect]
     Indication: CROHN'S DISEASE
     Dosage: LOADING DOSE OF 160 MG
     Route: 058
     Dates: start: 20100414
  2. HUMIRA [Suspect]
     Dosage: 80 MG
  3. HUMIRA [Suspect]
     Dates: end: 20100501
  4. IMUREL [Concomitant]
     Indication: CROHN'S DISEASE
     Dates: start: 20061201, end: 20100503
  5. IMODIUM [Concomitant]
     Indication: DRUG USE FOR UNKNOWN INDICATION
     Dosage: 1 CAPSULE/STOOL
  6. CORTNACYL [Concomitant]
     Indication: DRUG USE FOR UNKNOWN INDICATION
  7. DEBRIDAT [Concomitant]
     Indication: DRUG USE FOR UNKNOWN INDICATION
     Route: 048
  8. DIFFUK [Concomitant]
     Indication: DRUG USE FOR UNKNOWN INDICATION
  9. TRIFLUCAN [Concomitant]
     Indication: DRUG USE FOR UNKNOWN INDICATION
  10. PARACETAMOL [Concomitant]
     Indication: DRUG USE FOR UNKNOWN INDICATION
  11. MOTILIUM [Concomitant]
     Indication: DRUG USE FOR UNKNOWN INDICATION

REACTIONS (8)
  - CARDIAC TAMPONADE [None]
  - CYTOMEGALOVIRUS INFECTION [None]
  - HISTIOCYTOSIS HAEMATOPHAGIC [None]
  - ORAL FUNGAL INFECTION [None]
  - PANCYTOPENIA [None]
  - PERICARDITIS [None]
  - PYREXIA [None]
  - RHINORRHOEA [None]
